FAERS Safety Report 21754347 (Version 1)
Quarter: 2022Q4

REPORT INFORMATION
  Report Type: Spontaneous
  Country: CN (occurrence: CN)
  Receive Date: 20221220
  Receipt Date: 20221220
  Transmission Date: 20230113
  Serious: Yes (Hospitalization)
  Sender: FDA-Public Use
  Company Number: CN-Merck Healthcare KGaA-9371443

PATIENT
  Age: 62 Year
  Sex: Male
  Weight: 50 kg

DRUGS (3)
  1. ERBITUX [Suspect]
     Active Substance: CETUXIMAB
     Indication: Colon cancer metastatic
     Dosage: 750 MG, OTHER (ONCE IN THREE WEEK)
     Route: 041
     Dates: start: 20220930, end: 20221020
  2. RALTITREXED [Concomitant]
     Active Substance: RALTITREXED
     Indication: Colon cancer metastatic
     Dosage: UNK UNK, OTHER (ONCE IN THREE WEEK)
     Route: 041
     Dates: start: 20220930, end: 20221020
  3. IRINOTECAN HYDROCHLORIDE [Concomitant]
     Active Substance: IRINOTECAN HYDROCHLORIDE
     Indication: Colon cancer metastatic
     Dosage: UNK UNK, OTHER (ONCE IN THREE WEEK)
     Route: 041
     Dates: start: 20220930, end: 20221020

REACTIONS (4)
  - Skin haemorrhage [Recovering/Resolving]
  - Blister [Recovering/Resolving]
  - Papule [Recovering/Resolving]
  - Skin disorder [Recovering/Resolving]

NARRATIVE: CASE EVENT DATE: 20221031
